FAERS Safety Report 8508655-7 (Version None)
Quarter: 2012Q3

REPORT INFORMATION
  Report Type: 
  Country: None (occurrence: None)
  Receive Date: 20120713
  Receipt Date: 20120709
  Transmission Date: 20120928
  Serious: Yes (Other)
  Sender: FDA-Public Use
  Company Number: US-PFIZER INC-2012165054

PATIENT
  Sex: Female

DRUGS (11)
  1. BUMEX [Concomitant]
     Indication: FLUID RETENTION
     Dosage: UNK, DAILY
  2. MULTI-VITAMINS [Concomitant]
     Dosage: UNK, DAILY
  3. PAXIL CR [Suspect]
     Indication: ANXIETY
     Dosage: UNK, 2X/DAY
  4. ASCORBIC ACID [Concomitant]
     Dosage: UNK, DAILY
  5. DILANTIN [Suspect]
     Indication: PETIT MAL EPILEPSY
     Dosage: 200 MG, 2X/DAY
     Dates: start: 19940101
  6. MOBIC [Concomitant]
     Indication: SPONDYLITIS
     Dosage: UNK, 2X/DAY
  7. VITAMIN B-12 [Concomitant]
     Dosage: UNK, 2X/MONTH
  8. CALTRATE 600+D [Concomitant]
     Dosage: UNK, DAILY
  9. VITAMIN B6 [Concomitant]
     Dosage: UNK, DAILY
  10. ZINC [Concomitant]
     Dosage: UNK, DAILY
  11. MOBIC [Concomitant]
     Indication: INTERVERTEBRAL DISC DEGENERATION

REACTIONS (2)
  - ANXIETY [None]
  - PANIC ATTACK [None]
